FAERS Safety Report 5863428-9 (Version None)
Quarter: 2008Q3

REPORT INFORMATION
  Report Type: 
  Country: None (occurrence: None)
  Receive Date: 20080828
  Receipt Date: 20080821
  Transmission Date: 20090109
  Serious: Yes (Other)
  Sender: FDA-Public Use
  Company Number: PHEH2008US07409

PATIENT
  Sex: Female

DRUGS (2)
  1. EXELON [Suspect]
     Route: 062
  2. EXELON [Suspect]

REACTIONS (5)
  - DECREASED ACTIVITY [None]
  - DIZZINESS [None]
  - INSOMNIA [None]
  - LOSS OF CONSCIOUSNESS [None]
  - VOMITING [None]
